FAERS Safety Report 4382224-5 (Version None)
Quarter: 2004Q2

REPORT INFORMATION
  Report Type: 
  Country: None (occurrence: None)
  Receive Date: 20040615
  Receipt Date: 20040602
  Transmission Date: 20050107
  Serious: Yes (Other)
  Sender: FDA-Public Use
  Company Number: 20044

PATIENT
  Age: 33 Year
  Sex: Female
  Weight: 87.9978 kg

DRUGS (2)
  1. NIASPAN [Suspect]
     Indication: HYPERCHOLESTEROLAEMIA
     Dosage: 1000 MG QHS PO
     Route: 048
     Dates: start: 20040501, end: 20040511
  2. OMEGA 3 FATTY ACIDS [Concomitant]

REACTIONS (3)
  - ANAPHYLACTIC REACTION [None]
  - FEELING HOT [None]
  - FLUSHING [None]
